FAERS Safety Report 22357052 (Version 1)
Quarter: 2023Q2

REPORT INFORMATION
  Report Type: Report from Study
  Country: US (occurrence: US)
  Receive Date: 20230523
  Receipt Date: 20230523
  Transmission Date: 20230721
  Serious: Yes (Hospitalization)
  Sender: FDA-Public Use
  Company Number: US-BIOGEN-2023BI01206600

PATIENT
  Sex: Female

DRUGS (2)
  1. SPINRAZA [Suspect]
     Active Substance: NUSINERSEN
     Indication: Spinal muscular atrophy
     Route: 050
  2. RISDIPLAM [Suspect]
     Active Substance: RISDIPLAM
     Indication: Spinal muscular atrophy
     Route: 050

REACTIONS (11)
  - Herpes zoster [Unknown]
  - Limb injury [Unknown]
  - Post herpetic neuralgia [Unknown]
  - Diarrhoea [Unknown]
  - Fatigue [Unknown]
  - Chapped lips [Unknown]
  - Blister [Unknown]
  - Mouth ulceration [Unknown]
  - Muscle rupture [Unknown]
  - Pain in extremity [Unknown]
  - Insomnia [Unknown]
